FAERS Safety Report 16498045 (Version 1)
Quarter: 2019Q2

REPORT INFORMATION
  Report Type: Spontaneous
  Country: US (occurrence: US)
  Receive Date: 20190628
  Receipt Date: 20190628
  Transmission Date: 20190711
  Serious: Yes (Other)
  Sender: FDA-Public Use
  Company Number: US-MYLANLABS-2019M1059954

PATIENT

DRUGS (1)
  1. ETIDRONATE [Suspect]
     Active Substance: ETIDRONATE DISODIUM
     Indication: ARTERIOSCLEROSIS
     Route: 048

REACTIONS (12)
  - Rib fracture [Unknown]
  - Atelectasis [Unknown]
  - Feeding intolerance [Unknown]
  - Radius fracture [Unknown]
  - Pathological fracture [Unknown]
  - Hypercalciuria [Recovered/Resolved]
  - Rib deformity [Unknown]
  - Blood parathyroid hormone decreased [Recovered/Resolved]
  - Hyperphosphataemia [Recovering/Resolving]
  - Blood alkaline phosphatase increased [Unknown]
  - Dyspnoea [Unknown]
  - Hypercalcaemia [Recovered/Resolved]
